FAERS Safety Report 7253447 (Version 2)
Quarter: 2013Q2

REPORT INFORMATION
  Report Type: Spontaneous
  Country: AU (occurrence: AU)
  Receive Date: 20100124
  Receipt Date: 20130409
  Transmission Date: 20140414
  Serious: Yes (Other)
  Sender: FDA-Public Use
  Company Number: AU-ALEXION-A200900849

PATIENT
  Age: 43 Year
  Sex: Female

DRUGS (12)
  1. SOLIRIS [Suspect]
     Indication: PROPHYLAXIS AGAINST TRANSPLANT REJECTION
     Dosage: 1200 MG, UNK
     Route: 042
     Dates: start: 20091009, end: 20091009
  2. SOLIRIS [Suspect]
     Dosage: 900 MG, UNK
     Route: 042
     Dates: start: 200910
  3. SOLIRIS [Suspect]
     Dosage: 600 MG, POST-PLASMA EXCHANGE
     Route: 042
     Dates: start: 200910
  4. ATORVASTATIN [Concomitant]
  5. OMEPRAZOLE [Concomitant]
  6. VALPORATE [Concomitant]
  7. TELMISARTEN [Concomitant]
  8. METOPROLOL [Concomitant]
     Dosage: 25 MG, BID
  9. MYCOPHENOLATE [Concomitant]
  10. TACROLIMUS [Concomitant]
  11. BACTRIM                            /00086101/ [Concomitant]
  12. BASILIXUMAB [Concomitant]

REACTIONS (1)
  - Transplant rejection [Unknown]
